FAERS Safety Report 7372325-1 (Version None)
Quarter: 2011Q1

REPORT INFORMATION
  Report Type: 
  Country: None (occurrence: None)
  Receive Date: 20110324
  Receipt Date: 20110315
  Transmission Date: 20110831
  Serious: Yes (Hospitalization)
  Sender: FDA-Public Use
  Company Number: B0705819A

PATIENT
  Sex: Male

DRUGS (7)
  1. ZOPHREN [Suspect]
     Dosage: 2MG SINGLE DOSE
     Route: 042
     Dates: start: 20110223, end: 20110223
  2. TRANSIPEG [Concomitant]
  3. SOTALOL HCL [Concomitant]
  4. ACETAMINOPHEN [Concomitant]
  5. TAREG [Concomitant]
  6. SOLU-MEDROL [Suspect]
     Dosage: 120MG SINGLE DOSE
     Route: 042
     Dates: start: 20110223, end: 20110223
  7. CONTRAMAL [Concomitant]

REACTIONS (6)
  - CYANOSIS [None]
  - CHILLS [None]
  - DYSPNOEA [None]
  - PIGMENTATION DISORDER [None]
  - HYPERTENSION [None]
  - BRONCHOSPASM [None]
